FAERS Safety Report 4448284-8 (Version None)
Quarter: 2004Q3

REPORT INFORMATION
  Report Type: 
  Country: None (occurrence: None)
  Receive Date: 20040910
  Receipt Date: 20040907
  Transmission Date: 20050211
  Serious: Yes (Other)
  Sender: FDA-Public Use
  Company Number: C04-C-139

PATIENT
  Age: 46 Year
  Sex: Female
  Weight: 108.8633 kg

DRUGS (1)
  1. LITHIUM CARBONATE [Suspect]
     Indication: MANIA
     Dates: start: 20040810, end: 20040824

REACTIONS (2)
  - ANTIDEPRESSANT DRUG LEVEL DECREASED [None]
  - SOMNOLENCE [None]
